FAERS Safety Report 23283851 (Version 1)
Quarter: 2023Q4

REPORT INFORMATION
  Report Type: Report from Study
  Country: ES (occurrence: ES)
  Receive Date: 20231211
  Receipt Date: 20231211
  Transmission Date: 20240110
  Serious: Yes (Hospitalization)
  Sender: FDA-Public Use
  Company Number: None

PATIENT
  Age: 12 Year
  Sex: Male
  Weight: 37.7 kg

DRUGS (2)
  1. METHOTREXATE [Interacting]
     Active Substance: METHOTREXATE
     Indication: Leukoencephalopathy
     Dosage: UNK
     Route: 037
     Dates: start: 20210506, end: 20210623
  2. CYTARABINE [Interacting]
     Active Substance: CYTARABINE
     Indication: Acute leukaemia
     Dosage: 4 CYCLES
     Route: 065
     Dates: start: 20210506, end: 20210626

REACTIONS (2)
  - Encephalopathy [Recovering/Resolving]
  - Drug interaction [Unknown]

NARRATIVE: CASE EVENT DATE: 20210705
